FAERS Safety Report 4626848-6 (Version None)
Quarter: 2005Q1

REPORT INFORMATION
  Report Type: 
  Country: None (occurrence: None)
  Receive Date: 20050331
  Receipt Date: 20050318
  Transmission Date: 20050727
  Serious: Yes (Other)
  Sender: FDA-Public Use
  Company Number: 177713

PATIENT
  Age: 61 Year
  Sex: Female
  Weight: 86.1834 kg

DRUGS (3)
  1. AVONEX [Suspect]
     Indication: MULTIPLE SCLEROSIS
     Dosage: 30 UG; QW; IM
     Route: 030
     Dates: start: 19990601
  2. BACLOFEN [Concomitant]
  3. IBUPROFEN [Concomitant]

REACTIONS (2)
  - APPLICATION SITE ERYTHEMA [None]
  - HEART RATE IRREGULAR [None]
